FAERS Safety Report 8246674-9 (Version None)
Quarter: 2012Q1

REPORT INFORMATION
  Report Type: 
  Country: None (occurrence: None)
  Receive Date: 20120330
  Receipt Date: 20120320
  Transmission Date: 20120608
  Serious: Yes (Other)
  Sender: FDA-Public Use
  Company Number: US-JNJFOC-20120310601

PATIENT
  Sex: Male
  Weight: 57.2 kg

DRUGS (10)
  1. INTUNIV [Concomitant]
  2. STRATTERA [Concomitant]
  3. AZATHIOPRINE [Concomitant]
  4. PREDNISONE TAB [Concomitant]
  5. REMICADE [Suspect]
     Route: 042
     Dates: start: 20110706
  6. ABILIFY [Concomitant]
  7. FLAGYL [Concomitant]
  8. REMICADE [Suspect]
     Indication: INFLAMMATORY BOWEL DISEASE
     Route: 042
     Dates: start: 20120112, end: 20120112
  9. MESALAMINE [Concomitant]
     Route: 048
  10. IRON [Concomitant]
     Route: 048

REACTIONS (1)
  - INFUSION RELATED REACTION [None]
